FAERS Safety Report 7250092-X (Version None)
Quarter: 2011Q1

REPORT INFORMATION
  Report Type: 
  Country: None (occurrence: None)
  Receive Date: 20110128
  Receipt Date: 20110107
  Transmission Date: 20110831
  Serious: Yes (Hospitalization)
  Sender: FDA-Public Use
  Company Number: FR-BAYER-2010-005864

PATIENT
  Sex: Male
  Weight: 78 kg

DRUGS (12)
  1. BLINDED SORAFENIB (RAF KINASE INHIBITOR) [Suspect]
     Indication: HEPATIC NEOPLASM MALIGNANT
     Dosage: C1
     Route: 048
     Dates: start: 20101230
  2. NEXIUM [Concomitant]
     Indication: PROPHYLAXIS
     Dosage: 40 MG, UNK
     Dates: start: 20110105, end: 20110108
  3. LANTUS [Concomitant]
     Indication: DIABETES MELLITUS
     Dosage: 38 U, PRN
  4. ARIXTRA [Concomitant]
     Indication: THROMBOSIS PROPHYLAXIS
  5. AMLOR [Concomitant]
     Indication: HYPERTENSION
     Dosage: 5 MG, UNK
  6. ALPRAZOLAM [Concomitant]
  7. LASIX [Concomitant]
     Indication: PROPHYLAXIS
     Dosage: 40 MG, UNK
  8. TADENAN [Concomitant]
     Indication: PROPHYLAXIS
     Dosage: 50 MG, UNK
  9. ALDACTONE [Concomitant]
     Indication: PROPHYLAXIS
     Dosage: 75 MG, UNK
  10. SORAFENIB (RAF KINASE INHIBITOR) [Suspect]
     Indication: HEPATIC NEOPLASM MALIGNANT
     Dosage: C1
     Route: 048
     Dates: start: 20101230
  11. NOVORAPID [Concomitant]
     Indication: DIABETES MELLITUS
     Dosage: 100 U, PRN
  12. TAHOR [Concomitant]
     Indication: DYSLIPIDAEMIA
     Dosage: 10 MG, UNK

REACTIONS (1)
  - HEPATIC ENCEPHALOPATHY [None]
